FAERS Safety Report 16667904 (Version 1)
Quarter: 2019Q3

REPORT INFORMATION
  Report Type: Spontaneous
  Country: US (occurrence: US)
  Receive Date: 20190805
  Receipt Date: 20190805
  Transmission Date: 20191004
  Serious: No
  Sender: FDA-Public Use
  Company Number: US-BAYER-2019-145308

PATIENT
  Age: 81 Year
  Sex: Female
  Weight: 81 kg

DRUGS (4)
  1. BAYER LOW DOSE [Suspect]
     Active Substance: ASPIRIN
     Indication: EXTRASYSTOLES
     Dosage: UNK
     Dates: start: 2010
  2. BAYER LOW DOSE [Suspect]
     Active Substance: ASPIRIN
     Indication: EXTRASYSTOLES
     Dosage: 1 DF, QD
     Route: 048
     Dates: start: 201907, end: 20190802
  3. CLARITIN-D 24 HOUR [Suspect]
     Active Substance: LORATADINE\PSEUDOEPHEDRINE SULFATE
     Indication: HYPERSENSITIVITY
     Route: 048
     Dates: end: 20190802
  4. CLARITIN-D 24 HOUR [Suspect]
     Active Substance: LORATADINE\PSEUDOEPHEDRINE SULFATE
     Indication: NASOPHARYNGITIS

REACTIONS (5)
  - Product use in unapproved indication [Unknown]
  - Off label use [Unknown]
  - Product prescribing issue [Unknown]
  - Incorrect dose administered [Unknown]
  - Insomnia [Not Recovered/Not Resolved]

NARRATIVE: CASE EVENT DATE: 201005
